FAERS Safety Report 8939270 (Version 1)
Quarter: 2012Q4

REPORT INFORMATION
  Report Type: 
  Country: US (occurrence: US)
  Receive Date: 20121203
  Receipt Date: 20121203
  Transmission Date: 20130627
  Serious: No
  Sender: FDA-Public Use
  Company Number: US-PFIZER INC-2012302085

PATIENT
  Age: 72 Year
  Sex: Female

DRUGS (1)
  1. LIPITOR [Suspect]
     Indication: HIGH CHOLESTEROL
     Dosage: 20 mg, UNK

REACTIONS (3)
  - Gait disturbance [Unknown]
  - Myalgia [Unknown]
  - Burning sensation [Unknown]
